FAERS Safety Report 16187498 (Version 11)
Quarter: 2020Q2

REPORT INFORMATION
  Report Type: Report from Study
  Country: US (occurrence: US)
  Receive Date: 20190412
  Receipt Date: 20200603
  Transmission Date: 20200713
  Serious: Yes (Other)
  Sender: FDA-Public Use
  Company Number: PHEH2019US015361

PATIENT
  Age: 82 Year
  Sex: Female

DRUGS (2)
  1. ENTRESTO [Suspect]
     Active Substance: SACUBITRIL\VALSARTAN
     Indication: CARDIAC FAILURE CHRONIC
     Dosage: 50 MG (24 MG SACUBITRIL/26 MG VALSARTAN), BID
     Route: 048
     Dates: start: 201909
  2. ELIQUIS [Concomitant]
     Active Substance: APIXABAN
     Indication: PRODUCT USED FOR UNKNOWN INDICATION
     Dosage: UNK
     Route: 065

REACTIONS (19)
  - Malaise [Not Recovered/Not Resolved]
  - Dizziness [Not Recovered/Not Resolved]
  - Asthenia [Recovering/Resolving]
  - Hypoacusis [Unknown]
  - Dyspnoea [Not Recovered/Not Resolved]
  - Swelling [Not Recovered/Not Resolved]
  - Fall [Unknown]
  - Cough [Not Recovered/Not Resolved]
  - Diarrhoea [Not Recovered/Not Resolved]
  - Loss of consciousness [Unknown]
  - Vomiting [Recovering/Resolving]
  - Muscular weakness [Recovering/Resolving]
  - Ankle fracture [Unknown]
  - Memory impairment [Not Recovered/Not Resolved]
  - Contusion [Unknown]
  - Arthritis [Unknown]
  - Lethargy [Not Recovered/Not Resolved]
  - Head injury [Unknown]
  - Gait disturbance [Unknown]

NARRATIVE: CASE EVENT DATE: 20191201
